FAERS Safety Report 4611835-4 (Version None)
Quarter: 2005Q2

REPORT INFORMATION
  Report Type: 
  Country: None (occurrence: None)
  Receive Date: 20050308
  Receipt Date: 20050111
  Transmission Date: 20051028
  Serious: Yes (Other)
  Sender: FDA-Public Use
  Company Number: 2005UW00568

PATIENT
  Age: 78 Year
  Sex: Female
  Weight: 55.33 kg

DRUGS (4)
  1. CRESTOR [Suspect]
     Indication: HYPERCHOLESTEROLAEMIA
     Dosage: 10 MG QD PO
     Route: 048
  2. LOTREL [Concomitant]
  3. ACTINAL [Concomitant]
  4. PLAVIX [Concomitant]

REACTIONS (2)
  - GINGIVITIS [None]
  - TOOTH ABSCESS [None]
